FAERS Safety Report 16534470 (Version 1)
Quarter: 2019Q3

REPORT INFORMATION
  Report Type: Spontaneous
  Country: RU (occurrence: RU)
  Receive Date: 20190705
  Receipt Date: 20190705
  Transmission Date: 20191004
  Serious: Yes (Other)
  Sender: FDA-Public Use
  Company Number: RU-ROCHE-2346624

PATIENT
  Sex: Female

DRUGS (9)
  1. DOCETAXEL. [Suspect]
     Active Substance: DOCETAXEL
     Indication: BREAST CANCER
     Dosage: 8 COURSES
     Route: 065
     Dates: start: 201612, end: 201705
  2. KADCYLA [Suspect]
     Active Substance: ADO-TRASTUZUMAB EMTANSINE
     Indication: BREAST CANCER
     Route: 065
     Dates: start: 20180701
  3. GOSERELIN [Suspect]
     Active Substance: GOSERELIN
     Indication: BREAST CANCER
     Dosage: 16 INJECTIONS
     Route: 065
     Dates: start: 20111115
  4. TRASTUZUMAB. [Suspect]
     Active Substance: TRASTUZUMAB
     Indication: BREAST CANCER
     Dosage: 16 INJECTIONS
     Route: 065
     Dates: start: 20111115
  5. HALAVEN [Suspect]
     Active Substance: ERIBULIN MESYLATE
     Indication: BREAST CANCER
     Dosage: 4 COURSES
     Route: 065
     Dates: start: 201803, end: 201805
  6. CYCLOPHOSPHAN [Suspect]
     Active Substance: CYCLOPHOSPHAMIDE
     Indication: BREAST CANCER
     Dosage: 8 COURSES, WITHDRAWN AFTER 5 COURSE
     Route: 065
     Dates: start: 201612, end: 201705
  7. TAMOXIFEN [Suspect]
     Active Substance: TAMOXIFEN
     Indication: BREAST CANCER
     Dosage: 16 INJECTIONS
     Route: 065
     Dates: start: 20111115
  8. FULVESTRANT. [Suspect]
     Active Substance: FULVESTRANT
     Indication: BREAST CANCER
     Route: 065
     Dates: start: 20170601
  9. CAPECITABINE. [Suspect]
     Active Substance: CAPECITABINE
     Indication: BREAST CANCER
     Route: 048
     Dates: start: 201711, end: 201803

REACTIONS (6)
  - Rib fracture [Unknown]
  - Metastases to spine [Unknown]
  - Metastases to liver [Unknown]
  - Gastrointestinal toxicity [Unknown]
  - Metastases to bone [Unknown]
  - Metastases to central nervous system [Unknown]

NARRATIVE: CASE EVENT DATE: 201608
